FAERS Safety Report 9659993 (Version 1)
Quarter: 2013Q4

REPORT INFORMATION
  Report Type: Spontaneous
  Country: US (occurrence: US)
  Receive Date: 20131031
  Receipt Date: 20131031
  Transmission Date: 20140711
  Serious: No
  Sender: FDA-Public Use
  Company Number: US-ABBVIE-13P-163-1117811-00

PATIENT
  Sex: Male

DRUGS (1)
  1. BIAXIN [Suspect]
     Indication: BRONCHITIS
     Route: 048
     Dates: start: 2005, end: 2005

REACTIONS (3)
  - Oral candidiasis [Recovered/Resolved]
  - Hypophagia [Recovered/Resolved]
  - Oral pain [Recovered/Resolved]
